FAERS Safety Report 5803947-4 (Version None)
Quarter: 2008Q3

REPORT INFORMATION
  Report Type: 
  Country: None (occurrence: None)
  Receive Date: 20080708
  Receipt Date: 20080626
  Transmission Date: 20090109
  Serious: Yes (Other)
  Sender: FDA-Public Use
  Company Number: US-PFIZER INC-2008054527

PATIENT
  Sex: Female

DRUGS (8)
  1. LYRICA [Suspect]
     Indication: NEUROPATHY PERIPHERAL
  2. CYMBALTA [Concomitant]
  3. MOBIC [Concomitant]
  4. DICLOFENAC SODIUM [Concomitant]
  5. AMBIEN [Concomitant]
  6. FISH OIL [Concomitant]
  7. PREMPRO [Concomitant]
  8. NASAL PREPARATIONS [Concomitant]

REACTIONS (4)
  - COGNITIVE DISORDER [None]
  - RETINITIS [None]
  - SOMNOLENCE [None]
  - VISION BLURRED [None]
